FAERS Safety Report 8456643-1 (Version None)
Quarter: 2012Q2

REPORT INFORMATION
  Report Type: 
  Country: None (occurrence: None)
  Receive Date: 20120621
  Receipt Date: 20120606
  Transmission Date: 20120825
  Serious: Yes (Other)
  Sender: FDA-Public Use
  Company Number: US-COVIDIEN/TYCO HEALTHCARE/MALLINCKRODT-T201202606

PATIENT
  Age: 2 Year
  Weight: 10 kg

DRUGS (1)
  1. FENTANYL CITRATE [Suspect]
     Indication: ANAESTHESIA
     Dosage: 1 UG/KG INTRAOPERATIVE BOLUS

REACTIONS (1)
  - MUSCLE RIGIDITY [None]
